FAERS Safety Report 16715547 (Version 2)
Quarter: 2019Q3

REPORT INFORMATION
  Report Type: Report from Study
  Country: US (occurrence: US)
  Receive Date: 20190819
  Receipt Date: 20190906
  Transmission Date: 20191005
  Serious: Yes (Hospitalization)
  Sender: FDA-Public Use
  Company Number: US-ROCHE-2372574

PATIENT
  Age: 53 Year
  Sex: Female
  Weight: 87.6 kg

DRUGS (31)
  1. BLINDED ATEZOLIZUMAB [Suspect]
     Active Substance: ATEZOLIZUMAB
     Indication: OVARIAN CANCER STAGE IV
     Dosage: ON 25/JUN/2019, SHE RECEIVED MOST RECENT DOSE PRIOR TO SAE.
     Route: 042
     Dates: start: 20190108
  2. ACETAMINOPHEN. [Concomitant]
     Active Substance: ACETAMINOPHEN
     Indication: PAIN
     Route: 065
     Dates: start: 20181206
  3. PRILOSEC [Concomitant]
     Active Substance: OMEPRAZOLE MAGNESIUM
     Indication: PAIN
     Route: 065
     Dates: start: 20190129
  4. DRONABINOL. [Concomitant]
     Active Substance: DRONABINOL
     Indication: NAUSEA
  5. BACITRACIN. [Concomitant]
     Active Substance: BACITRACIN
     Indication: FOLLICULITIS
     Route: 065
     Dates: start: 20190607
  6. POLYETHYLENE GLYCOL 3350. [Concomitant]
     Active Substance: POLYETHYLENE GLYCOL 3350
     Indication: CONSTIPATION
     Dosage: 3350 17 GRAM/DOSE
     Route: 065
     Dates: start: 20181120
  7. CARBOPLATIN. [Suspect]
     Active Substance: CARBOPLATIN
     Indication: OVARIAN CANCER STAGE IV
     Dosage: ON 23/APR/2019, SHE RECEIVED MOST RECENT DOSE 860 MG PRIOR TO SAE.?CARBOPLATIN AT A DOSE TO ACHIEVE
     Route: 042
     Dates: start: 20190108
  8. PAXIL [Concomitant]
     Active Substance: PAROXETINE HYDROCHLORIDE
     Indication: DEPRESSION
     Route: 065
  9. DIPHENHYDRAMINE. [Concomitant]
     Active Substance: DIPHENHYDRAMINE
     Indication: ORAL PAIN
     Route: 065
     Dates: start: 20190110
  10. LIDOCAINE;PRILOCAINE [Concomitant]
     Indication: PAIN
     Dosage: 2.5-2.5%
     Route: 065
     Dates: start: 20190108
  11. MUCINEX [Concomitant]
     Active Substance: GUAIFENESIN
     Indication: SINUS CONGESTION
     Route: 065
     Dates: start: 20181225
  12. PRAVASTATIN. [Concomitant]
     Active Substance: PRAVASTATIN
     Indication: HYPERLIPIDAEMIA
     Route: 065
     Dates: start: 20181015
  13. ZOFRAN [Concomitant]
     Active Substance: ONDANSETRON HYDROCHLORIDE
     Indication: NAUSEA
     Route: 065
     Dates: start: 20181120
  14. DOCUSATE [Concomitant]
     Active Substance: DOCUSATE
     Indication: CONSTIPATION
     Route: 065
     Dates: start: 20181120
  15. SENNOSIDES. [Concomitant]
     Active Substance: SENNOSIDES
     Indication: CONSTIPATION
     Route: 065
     Dates: start: 20181120
  16. ATIVAN [Concomitant]
     Active Substance: LORAZEPAM
     Indication: ANXIETY
     Route: 065
     Dates: start: 20190129, end: 20190717
  17. PHENERGAN W/ CODEINE [Concomitant]
     Active Substance: CODEINE PHOSPHATE\PROMETHAZINE HYDROCHLORIDE
     Indication: COUGH
     Dosage: 6.25-10 MG/5 ML
     Route: 065
     Dates: start: 20190402
  18. FLUCONAZOLE. [Concomitant]
     Active Substance: FLUCONAZOLE
     Indication: VULVOVAGINAL BURNING SENSATION
     Route: 065
     Dates: start: 20190405
  19. NEOMYCIN;POLYMYXIN B [Concomitant]
     Indication: FOLLICULITIS
     Route: 065
     Dates: start: 20190607
  20. VALIUM [Concomitant]
     Active Substance: DIAZEPAM
     Indication: MYALGIA
     Route: 065
     Dates: start: 20190717
  21. DRONABINOL. [Concomitant]
     Active Substance: DRONABINOL
     Indication: ANXIETY
     Route: 065
  22. VALIUM [Concomitant]
     Active Substance: DIAZEPAM
     Indication: ANXIETY
  23. METOPROLOL TARTRATE. [Concomitant]
     Active Substance: METOPROLOL TARTRATE
     Indication: VENTRICULAR ARRHYTHMIA
     Route: 065
     Dates: start: 20181103
  24. ANTACIDS, OTHER COMBINATIONS [Concomitant]
     Active Substance: ANTACIDS NOS
     Indication: ORAL PAIN
     Route: 065
     Dates: start: 20190110
  25. NEURONTIN [Concomitant]
     Active Substance: GABAPENTIN
     Indication: PERIPHERAL SENSORY NEUROPATHY
     Route: 065
     Dates: start: 20181211
  26. LIDOCAINE VISCOUS [Concomitant]
     Active Substance: LIDOCAINE HYDROCHLORIDE
     Indication: ORAL PAIN
     Route: 065
     Dates: start: 20190110
  27. BEVACIZUMAB. [Suspect]
     Active Substance: BEVACIZUMAB
     Indication: OVARIAN CANCER STAGE IV
     Dosage: ON 02/APR/2019, SHE RECEIVED MOST RECENT DOSE 1210.5 MG PRIOR TO SAE.
     Route: 042
     Dates: start: 20190129
  28. PACLITAXEL. [Suspect]
     Active Substance: PACLITAXEL
     Indication: OVARIAN CANCER STAGE IV
     Dosage: ON 23/APR/2019, SHE RECEIVED MOST RECENT DOSE 258 MG PRIOR TO SAE.
     Route: 042
     Dates: start: 20190108
  29. COMPRO [Concomitant]
     Active Substance: PROCHLORPERAZINE
     Indication: NAUSEA
     Route: 065
     Dates: start: 20181120
  30. VENTOLIN HFA [Concomitant]
     Active Substance: ALBUTEROL SULFATE
     Indication: ASTHMA
     Dosage: 90MCG
     Route: 065
     Dates: start: 20181114
  31. ZYRTEC [Concomitant]
     Active Substance: CETIRIZINE HYDROCHLORIDE
     Indication: PRURITUS
     Route: 065
     Dates: start: 20190129

REACTIONS (1)
  - Syncope [Recovered/Resolved]

NARRATIVE: CASE EVENT DATE: 20190804
